FAERS Safety Report 21952329 (Version 1)
Quarter: 2023Q1

REPORT INFORMATION
  Report Type: Report from Study
  Country: US (occurrence: US)
  Receive Date: 20230203
  Receipt Date: 20230203
  Transmission Date: 20230418
  Serious: No
  Sender: FDA-Public Use
  Company Number: US-EXELIXIS-CABO-22051600

PATIENT
  Sex: Male

DRUGS (8)
  1. CABOMETYX [Suspect]
     Active Substance: CABOZANTINIB S-MALATE
     Indication: Renal cancer
     Dosage: 60 MG
  2. CABOMETYX [Suspect]
     Active Substance: CABOZANTINIB S-MALATE
     Dosage: 40 MG, QD
     Route: 048
     Dates: start: 20210604
  3. CYCLOBENZAPRINE [Concomitant]
     Active Substance: CYCLOBENZAPRINE
  4. CYCLOBENZAPRINE HYDROCHLORIDE [Concomitant]
     Active Substance: CYCLOBENZAPRINE HYDROCHLORIDE
  5. METOPROLOL SUCCINATE [Concomitant]
     Active Substance: METOPROLOL SUCCINATE
  6. ONDANSETRON [Concomitant]
     Active Substance: ONDANSETRON
  7. TAMSULOSIN [Concomitant]
     Active Substance: TAMSULOSIN
  8. VOTRIENT [Concomitant]
     Active Substance: PAZOPANIB HYDROCHLORIDE

REACTIONS (3)
  - Nasopharyngitis [Unknown]
  - Drug ineffective [Unknown]
  - Rash [Unknown]
